FAERS Safety Report 5922194-9 (Version None)
Quarter: 2008Q4

REPORT INFORMATION
  Report Type: 
  Country: None (occurrence: None)
  Receive Date: 20081017
  Receipt Date: 20081008
  Transmission Date: 20090506
  Serious: Yes (Hospitalization, Other)
  Sender: FDA-Public Use
  Company Number: US-ABBOTT-08P-163-0480656-00

PATIENT
  Sex: Female
  Weight: 67.192 kg

DRUGS (10)
  1. HUMIRA [Suspect]
     Indication: CROHN'S DISEASE
     Route: 058
     Dates: start: 20080601, end: 20080901
  2. MESALAMINE [Concomitant]
     Indication: CROHN'S DISEASE
     Dosage: 25 MG TABS TAKE 4 TABS TWICE A DAY
  3. DULOXETINE HYDROCHLORIDE [Concomitant]
     Indication: DEPRESSION
  4. FOLIC ACID [Concomitant]
     Indication: VITAMIN SUPPLEMENTATION
  5. METANX [Concomitant]
     Indication: MEDICAL DIET
  6. VITAMIN TAB [Concomitant]
     Indication: VITAMIN SUPPLEMENTATION
  7. ACETYLSALICYLIC ACID SRT [Concomitant]
     Indication: DRUG USE FOR UNKNOWN INDICATION
  8. PANTOPRAZOLE SODIUM [Concomitant]
     Indication: DYSPEPSIA
  9. CYANOCOBALAMIN [Concomitant]
     Indication: VITAMIN SUPPLEMENTATION
     Route: 050
  10. CYANOCOBALAMIN [Concomitant]
     Indication: FATIGUE

REACTIONS (3)
  - ARTHRALGIA [None]
  - ASHERMAN'S SYNDROME [None]
  - PYREXIA [None]
